FAERS Safety Report 9742622 (Version 1)
Quarter: 2013Q4

REPORT INFORMATION
  Report Type: Spontaneous
  Country: US (occurrence: US)
  Receive Date: 20131210
  Receipt Date: 20131210
  Transmission Date: 20140711
  Serious: No
  Sender: FDA-Public Use
  Company Number: US-GILEAD-2009-0024842

PATIENT
  Age: 78 Year
  Sex: Male
  Weight: 77.56 kg

DRUGS (14)
  1. LETAIRIS [Suspect]
     Indication: PULMONARY ARTERIAL HYPERTENSION
     Route: 048
     Dates: start: 20090826
  2. CIALIS [Concomitant]
  3. TRUSOP [Concomitant]
  4. HYTRIN [Concomitant]
  5. DIOVAN [Concomitant]
  6. TERAZOSIN [Concomitant]
  7. DICLOFENAC [Concomitant]
  8. FINASTERIDE [Concomitant]
  9. PRILOSEC [Concomitant]
  10. HYDROXYZ HCL [Concomitant]
  11. ALLOPURINOL [Concomitant]
  12. SKELAXIN [Concomitant]
  13. COMBIVENT [Concomitant]
  14. SPIRIVA [Concomitant]

REACTIONS (2)
  - Oedema [Recovered/Resolved]
  - Fluid retention [Recovered/Resolved]
